FAERS Safety Report 7971743-8 (Version None)
Quarter: 2011Q4

REPORT INFORMATION
  Report Type: 
  Country: None (occurrence: None)
  Receive Date: 20111212
  Receipt Date: 20111129
  Transmission Date: 20120403
  Serious: Yes (Hospitalization)
  Sender: FDA-Public Use
  Company Number: DE-MYLANLABS-2011S1024500

PATIENT
  Age: 31 Year
  Sex: Male

DRUGS (2)
  1. ZOPICLONE [Suspect]
     Indication: DEPRESSION
     Route: 048
  2. MIRTAZAPINE [Suspect]
     Indication: DEPRESSION
     Route: 048

REACTIONS (1)
  - RHABDOMYOLYSIS [None]
